FAERS Safety Report 9746773 (Version 4)
Quarter: 2014Q1

REPORT INFORMATION
  Report Type: Spontaneous
  Country: IT (occurrence: IT)
  Receive Date: 20131211
  Receipt Date: 20140219
  Transmission Date: 20141002
  Serious: Yes (Hospitalization)
  Sender: FDA-Public Use
  Company Number: IT-PFIZER INC-2013353171

PATIENT
  Age: 74 Year
  Sex: Female

DRUGS (7)
  1. XANAX [Suspect]
     Dosage: 30 GTT, DAILY
     Route: 048
     Dates: start: 20130625, end: 20130628
  2. BISOPROLOL FUMARATE [Concomitant]
     Indication: HYPERTENSION
     Dosage: 2.5 MG, UNK
     Route: 048
     Dates: end: 20130628
  3. COMBISARTAN [Concomitant]
     Indication: HYPERTENSION
     Dosage: 1 DF, UNK
     Route: 048
     Dates: end: 20130628
  4. CARDIOASPIRIN [Concomitant]
     Indication: ATRIAL FIBRILLATION
     Dosage: 100 MG, UNK
     Route: 048
     Dates: end: 20130628
  5. JANUVIA [Concomitant]
     Indication: DIABETES MELLITUS
     Dosage: 100 MG, UNK
     Route: 048
     Dates: end: 20130628
  6. CYMBALTA [Concomitant]
     Indication: DEPRESSION
     Dosage: 60 MG, UNK
     Route: 048
  7. CYMBALTA [Concomitant]
     Dosage: 30 MG, UNK
     Route: 048
     Dates: end: 20130628

REACTIONS (3)
  - Overdose [Recovered/Resolved]
  - Sopor [Recovered/Resolved]
  - Drug abuse [Recovered/Resolved]
